FAERS Safety Report 5019904-4 (Version None)
Quarter: 2006Q2

REPORT INFORMATION
  Report Type: 
  Country: None (occurrence: None)
  Receive Date: 20060605
  Receipt Date: 20060605
  Transmission Date: 20061013
  Serious: No
  Sender: FDA-Public Use
  Company Number: None

PATIENT
  Sex: Male
  Weight: 88.905 kg

DRUGS (1)
  1. ATIVAN [Suspect]
     Indication: ANXIETY
     Dosage: 0.5 MG (1) BID; 0.5MG (2) QHS
     Dates: start: 20041101, end: 20060501

REACTIONS (1)
  - PHARMACEUTICAL PRODUCT COMPLAINT [None]
